FAERS Safety Report 24417773 (Version 1)
Quarter: 2024Q4

REPORT INFORMATION
  Report Type: Spontaneous
  Country: GB (occurrence: GB)
  Receive Date: 20241009
  Receipt Date: 20241009
  Transmission Date: 20250115
  Serious: Yes (Hospitalization, Disabling, Other)
  Sender: TEVA
  Company Number: GB-MHRA-TPP1948806C10586283YC1728034957338

PATIENT
  Age: 65 Year
  Sex: Male
  Weight: 105 kg

DRUGS (12)
  1. METFORMIN [Suspect]
     Active Substance: METFORMIN HYDROCHLORIDE
     Indication: Ill-defined disorder
     Dosage: WITH BREAKFAST FOR 1...
     Route: 065
     Dates: start: 20240712
  2. METFORMIN HYDROCHLORIDE [Concomitant]
     Active Substance: METFORMIN HYDROCHLORIDE
     Indication: Ill-defined disorder
     Dosage: IN THE MORNING WITH FOOD, TPP YC - PLEASE RECLASSIFY
     Dates: start: 20240808
  3. TIRZEPATIDE [Concomitant]
     Active Substance: TIRZEPATIDE
     Indication: Ill-defined disorder
     Dosage: TPP YC - PLEASE RECLASSIFY
     Dates: start: 20240916
  4. DIAZEPAM [Concomitant]
     Active Substance: DIAZEPAM
     Indication: Ill-defined disorder
     Dosage: TIME INTERVAL: AS NECESSARY: TPP YC - PLEASE RECLASSIFY
  5. TAMSULOSIN HYDROCHLORIDE [Concomitant]
     Active Substance: TAMSULOSIN HYDROCHLORIDE
     Indication: Ill-defined disorder
     Dosage: TPP YC - PLEASE RECLASSIFY
     Dates: start: 20240910
  6. AMLODIPINE [Concomitant]
     Active Substance: AMLODIPINE BESYLATE
     Indication: Ill-defined disorder
     Dosage: TPP YC - PLEASE RECLASSIFY
     Dates: start: 20231205
  7. ARTIFICIAL SALIVA [Concomitant]
     Indication: Ill-defined disorder
     Dosage: USE AS DIRECTED, TPP YC - PLEASE RECLASSIFY
     Dates: start: 20240925, end: 20241002
  8. ASPIRIN [Concomitant]
     Active Substance: ASPIRIN
     Indication: Ill-defined disorder
     Dosage: TPP YC - PLEASE RECLASSIFY
     Dates: start: 20231205
  9. LORAZEPAM [Concomitant]
     Active Substance: LORAZEPAM
     Indication: Ill-defined disorder
     Dosage: CEDURE, CAN REPEAT DOSE IF NOT WELL SETTLED, TPP YC - PLEASE RECLASSIFY
     Dates: start: 20240905, end: 20240906
  10. LANSOPRAZOLE [Concomitant]
     Active Substance: LANSOPRAZOLE
     Indication: Ill-defined disorder
     Dates: start: 20231205
  11. ATORVASTATIN [Concomitant]
     Active Substance: ATORVASTATIN
     Indication: Ill-defined disorder
     Dosage: TPP YC - PLEASE RECLASSIFY
     Dates: start: 20231205
  12. MIRTAZAPINE [Concomitant]
     Active Substance: MIRTAZAPINE
     Indication: Ill-defined disorder
     Dosage: AT NIGHT, TPP YC - PLEASE RECLASSIFY
     Dates: start: 20240925

REACTIONS (1)
  - Oropharyngeal spasm [Recovering/Resolving]
